FAERS Safety Report 25930055 (Version 1)
Quarter: 2025Q4

REPORT INFORMATION
  Report Type: Spontaneous
  Country: US (occurrence: None)
  Receive Date: 20251015
  Receipt Date: 20251015
  Transmission Date: 20260118
  Serious: Yes (Life-Threatening, Disabling)
  Sender: FDA-CTU
  Company Number: None

PATIENT
  Age: 25 Year
  Sex: Female
  Weight: 61.65 kg

DRUGS (2)
  1. FLUOXETINE [Suspect]
     Active Substance: FLUOXETINE HYDROCHLORIDE
     Dosage: OTHER QUANTITY : 30 CAPSULE(S);?
     Route: 048
  2. UNSPECIFIED INGREDIENT [Concomitant]
     Active Substance: UNSPECIFIED INGREDIENT

REACTIONS (13)
  - Nervous system disorder [None]
  - Insomnia [None]
  - Tremor [None]
  - Heart rate increased [None]
  - Anxiety [None]
  - Electric shock sensation [None]
  - Sensory disturbance [None]
  - Vomiting [None]
  - Loss of personal independence in daily activities [None]
  - Disability [None]
  - Impaired work ability [None]
  - Neuralgia [None]
  - Social problem [None]

NARRATIVE: CASE EVENT DATE: 20241111
